FAERS Safety Report 9216264 (Version 2)
Quarter: 2013Q4

REPORT INFORMATION
  Report Type: Spontaneous
  Country: US (occurrence: US)
  Receive Date: 20130408
  Receipt Date: 20131112
  Transmission Date: 20140711
  Serious: Yes (Other)
  Sender: FDA-Public Use
  Company Number: US-BAYER-2013-042690

PATIENT
  Age: 32 Year
  Sex: Female

DRUGS (4)
  1. OCELLA [Suspect]
     Dosage: UNK
     Dates: start: 2008
  2. LEVOTHYROXINE [Concomitant]
     Dosage: 150 MCG/24HR, UNK
  3. DIAZEPAM [Concomitant]
     Dosage: 2 MG, UNK
  4. PROMETHAZINE [Concomitant]
     Dosage: 25 MG, UNK

REACTIONS (5)
  - Cholecystectomy [None]
  - Injury [None]
  - Pain [None]
  - Pain [None]
  - Cholecystitis chronic [None]
